FAERS Safety Report 23292492 (Version 1)
Quarter: 2023Q4

REPORT INFORMATION
  Report Type: Spontaneous
  Country: RO (occurrence: RO)
  Receive Date: 20231213
  Receipt Date: 20231213
  Transmission Date: 20240110
  Serious: Yes (Other)
  Sender: FDA-Public Use
  Company Number: RO-Merck Healthcare KGaA-2023492960

PATIENT
  Age: 62 Year

DRUGS (1)
  1. AVELUMAB [Suspect]
     Active Substance: AVELUMAB
     Indication: Transitional cell carcinoma
     Dosage: 10 CYCLES
     Dates: start: 202307

REACTIONS (4)
  - Syncope [Unknown]
  - Thrombocytopenia [Unknown]
  - Dysphonia [Unknown]
  - Weight increased [Unknown]

NARRATIVE: CASE EVENT DATE: 20230801
